FAERS Safety Report 5377485-X (Version None)
Quarter: 2007Q3

REPORT INFORMATION
  Report Type: 
  Country: None (occurrence: None)
  Receive Date: 20070703
  Receipt Date: 20070621
  Transmission Date: 20080115
  Serious: Yes (Death, Hospitalization, Other)
  Sender: FDA-Public Use
  Company Number: US-ROCHE-503975

PATIENT
  Age: 63 Year
  Sex: Male

DRUGS (8)
  1. CELLCEPT [Suspect]
     Indication: PROPHYLAXIS AGAINST TRANSPLANT REJECTION
     Route: 048
  2. CELLCEPT [Suspect]
     Dosage: ON ADMISSION ON DAY +52 POST PBSCT.
     Route: 048
  3. FK-506 [Suspect]
     Indication: PROPHYLAXIS AGAINST TRANSPLANT REJECTION
     Route: 048
  4. FK-506 [Suspect]
     Dosage: ON ADMISSION ON DAY +52 POST PBSCT.
     Route: 048
  5. METHOTREXATE [Suspect]
     Indication: PROPHYLAXIS AGAINST TRANSPLANT REJECTION
     Route: 065
  6. FLUDARABINE PHOSPHATE [Concomitant]
     Dosage: CONDITIONING REGIMEN FOR THE PBSCT.
  7. CYCLOPHOSPHAMIDE [Concomitant]
     Dosage: CONDITIONING REGIMEN FOR PBSCT.
  8. FLUCONAZOLE [Concomitant]
     Indication: ANTIFUNGAL PROPHYLAXIS
     Dosage: ON ADMISSION ON DAY +52 POST PBSCT, DOSING REGIMEN WAS 400MG DAILY.

REACTIONS (10)
  - DIARRHOEA [None]
  - DIVERTICULITIS [None]
  - ESCHERICHIA BACTERAEMIA [None]
  - GRAFT VERSUS HOST DISEASE [None]
  - NEUTROPENIA [None]
  - PANCYTOPENIA [None]
  - PNEUMONITIS [None]
  - PULMONARY HAEMORRHAGE [None]
  - RENAL NEOPLASM [None]
  - ZYGOMYCOSIS [None]
